FAERS Safety Report 5732896-5 (Version None)
Quarter: 2008Q2

REPORT INFORMATION
  Report Type: 
  Country: None (occurrence: None)
  Receive Date: 20080509
  Receipt Date: 20080215
  Transmission Date: 20081010
  Serious: No
  Sender: FDA-Public Use
  Company Number: A0709998A

PATIENT
  Age: 83 Year
  Sex: Female

DRUGS (6)
  1. COREG CR [Suspect]
     Dosage: 40MG PER DAY
     Route: 048
     Dates: start: 20051201, end: 20080102
  2. COREG [Suspect]
     Route: 048
     Dates: start: 20080102
  3. ZOCOR [Concomitant]
  4. LASIX [Concomitant]
  5. FOLGARD [Concomitant]
  6. CHILDREN'S ASPIRIN [Concomitant]

REACTIONS (2)
  - PAIN [None]
  - SWELLING [None]
